FAERS Safety Report 21092275 (Version 1)
Quarter: 2022Q3

REPORT INFORMATION
  Report Type: Spontaneous
  Country: NL (occurrence: NL)
  Receive Date: 20220718
  Receipt Date: 20220718
  Transmission Date: 20221027
  Serious: Yes (Other)
  Sender: FDA-Public Use
  Company Number: NL-LRB-00814852

PATIENT
  Age: 72 Year
  Sex: Male
  Weight: 74 kg

DRUGS (5)
  1. FINASTERIDE [Suspect]
     Active Substance: FINASTERIDE
     Indication: Haematuria
     Dosage: 5 MILLIGRAM, ONCE A DAY(1D1T)
     Route: 065
     Dates: start: 20220523, end: 20220610
  2. ATORVASTATIN [Concomitant]
     Active Substance: ATORVASTATIN
     Indication: Product used for unknown indication
     Dosage: 10 MILLIGRAM (TABLET, 10 MG (MILLIGRAM))
     Route: 065
  3. METOPROLOL SUCCINATE [Concomitant]
     Active Substance: METOPROLOL SUCCINATE
     Indication: Product used for unknown indication
     Dosage: 50 MILLIGRAM (TABLET MET GEREGULEERDE AFGIFTE, 50 MG (MILLIGRAM))
     Route: 065
  4. OMEPRAZOLE [Concomitant]
     Active Substance: OMEPRAZOLE
     Indication: Product used for unknown indication
     Dosage: 20 MILLIGRAM (MAAGSAPRESISTENTE TABLET, 20 MG (MILLIGRAM)0
     Route: 065
  5. TAMSULOSIN HYDROCHLORIDE [Concomitant]
     Active Substance: TAMSULOSIN HYDROCHLORIDE
     Indication: Product used for unknown indication
     Dosage: 0.4 MILLIGRAM (CAPSULE MET GEREGULEERDE AFGIFTE, 0,4 MG (MILLIGRAM))

REACTIONS (2)
  - Epididymitis [Recovering/Resolving]
  - Scrotal pain [Recovering/Resolving]

NARRATIVE: CASE EVENT DATE: 20220530
